FAERS Safety Report 14851753 (Version 1)
Quarter: 2018Q2

REPORT INFORMATION
  Report Type: Spontaneous
  Country: US (occurrence: US)
  Receive Date: 20180507
  Receipt Date: 20180507
  Transmission Date: 20180711
  Serious: No
  Sender: FDA-Public Use
  Company Number: US-UNITED THERAPEUTICS-UNT-2018-006154

PATIENT
  Sex: Female

DRUGS (1)
  1. TYVASO [Suspect]
     Active Substance: TREPROSTINIL
     Indication: PULMONARY ARTERIAL HYPERTENSION
     Dosage: 72 ?G, QID
     Dates: start: 20160824

REACTIONS (5)
  - Urinary tract infection [Unknown]
  - Dyspnoea at rest [Unknown]
  - Dyspnoea exertional [Unknown]
  - Off label use [Unknown]
  - Fluid retention [Unknown]

NARRATIVE: CASE EVENT DATE: 20160824
